FAERS Safety Report 20793952 (Version 1)
Quarter: 2022Q2

REPORT INFORMATION
  Report Type: Report from Study
  Country: ES (occurrence: ES)
  Receive Date: 20220506
  Receipt Date: 20220506
  Transmission Date: 20220720
  Serious: Yes (Other)
  Sender: FDA-Public Use
  Company Number: ES-SUN PHARMACEUTICAL INDUSTRIES LTD-2022RR-332340

PATIENT
  Age: 91 Year
  Sex: Male

DRUGS (9)
  1. SONIDEGIB [Suspect]
     Active Substance: SONIDEGIB
     Indication: Basal cell carcinoma
     Dosage: 200 MILLIGRAM, DAILY
     Route: 048
     Dates: start: 20211022, end: 20220222
  2. Optovite B12/mensual [Concomitant]
     Indication: Pre-existing disease
     Dosage: 2 MILLILITER, UNK
     Route: 030
     Dates: start: 20130603
  3. SINTROM [Concomitant]
     Active Substance: ACENOCOUMAROL
     Indication: Pre-existing disease
     Dosage: 40 MILLIGRAM, DAILY
     Route: 048
     Dates: start: 20190424
  4. Nitrofix patch [Concomitant]
     Indication: Pre-existing disease
     Dosage: 5 MILLIGRAM, BID
     Route: 062
  5. URBAL [Concomitant]
     Indication: Pre-existing disease
     Dosage: 1 GRAM, BID
     Route: 048
  6. FERROUS SULFATE [Concomitant]
     Active Substance: FERROUS SULFATE
     Indication: Prophylaxis
     Dosage: 80 MILLIGRAM, DAILY
     Route: 048
  7. OMEPRAZOLE [Concomitant]
     Active Substance: OMEPRAZOLE
     Indication: Prophylaxis
     Dosage: 40 MILLIGRAM, DAILY
     Route: 048
  8. LORAZEPAM [Concomitant]
     Active Substance: LORAZEPAM
     Indication: Prophylaxis
     Dosage: 1.5 MILLIGRAM, DAILY
     Route: 048
  9. ATORVASTATIN [Concomitant]
     Active Substance: ATORVASTATIN
     Indication: Prophylaxis
     Dosage: 10 MILLIGRAM, DAILY
     Route: 048

REACTIONS (3)
  - Bacterial infection [Unknown]
  - Hypoalbuminaemia [Unknown]
  - Muscular weakness [Recovered/Resolved]

NARRATIVE: CASE EVENT DATE: 20220223
